FAERS Safety Report 23213623 (Version 6)
Quarter: 2024Q1

REPORT INFORMATION
  Report Type: Spontaneous
  Country: US (occurrence: US)
  Receive Date: 20231121
  Receipt Date: 20240206
  Transmission Date: 20240410
  Serious: Yes (Life-Threatening, Hospitalization, Other)
  Sender: FDA-Public Use
  Company Number: US-PFIZER INC-PV202300188329

PATIENT
  Age: 15 Year
  Sex: Female
  Weight: 96 kg

DRUGS (8)
  1. METHOTREXATE SODIUM [Interacting]
     Active Substance: METHOTREXATE SODIUM
     Indication: B-cell type acute leukaemia
     Dosage: 150 MG/M2, CYCLIC, STARTING DOSE OF 100 AND ESCALATING BY 50 ON DAYS 1, 11, 21, 31, AND 41
     Route: 042
  2. METHOTREXATE SODIUM [Interacting]
     Active Substance: METHOTREXATE SODIUM
     Indication: Central nervous system leukaemia
     Dosage: 100 MG/M2, CYCLIC, CAPIZZI CYCLE, STARTING AT A DOSE OF 100 MG/M2/DAY
     Route: 042
  3. METHOTREXATE SODIUM [Interacting]
     Active Substance: METHOTREXATE SODIUM
     Dosage: 250 MG/M2, CYCLIC, STARTING AT A DOSE OF 100/DAY AND ESCALATING BY 50 ON DAYS 1, 11, 21, 31, AND 41
     Route: 042
  4. METHOTREXATE SODIUM [Interacting]
     Active Substance: METHOTREXATE SODIUM
     Dosage: 300 MG/M2, CYCLIC, LAST DOSE
     Route: 042
  5. METHOTREXATE SODIUM [Interacting]
     Active Substance: METHOTREXATE SODIUM
     Dosage: 200 MG/M2, CYCLIC
     Route: 042
  6. ESOMEPRAZOLE [Interacting]
     Active Substance: ESOMEPRAZOLE
     Indication: Gastrooesophageal reflux disease
     Dosage: UNK
  7. PEGASPARGASE [Interacting]
     Active Substance: PEGASPARGASE
     Indication: B-cell type acute leukaemia
     Dosage: 2500 IU/M2
  8. PEGASPARGASE [Interacting]
     Active Substance: PEGASPARGASE
     Indication: Central nervous system leukaemia
     Dosage: 3750 IU/M2, ON DAYS 2 AND 22

REACTIONS (9)
  - Multiple organ dysfunction syndrome [Recovering/Resolving]
  - Acute kidney injury [Recovering/Resolving]
  - Acute hepatic failure [Recovering/Resolving]
  - Pancreatitis [Recovering/Resolving]
  - Toxicity to various agents [Recovering/Resolving]
  - Drug interaction [Recovering/Resolving]
  - Hepatic steatosis [Recovering/Resolving]
  - Disease progression [Recovering/Resolving]
  - Chemotherapeutic drug level increased [Recovered/Resolved]
